FAERS Safety Report 5014979-0 (Version None)
Quarter: 2006Q2

REPORT INFORMATION
  Report Type: 
  Country: None (occurrence: None)
  Receive Date: 20060414
  Receipt Date: 20060223
  Transmission Date: 20061013
  Serious: No
  Sender: FDA-Public Use
  Company Number: 2006SP000907

PATIENT
  Age: 50 Year
  Sex: Female
  Weight: 57.1532 kg

DRUGS (3)
  1. LUNESTA [Suspect]
     Indication: INSOMNIA
     Dosage: 3 MG;HS;ORAL
     Route: 048
     Dates: start: 20060222, end: 20060223
  2. XANAX [Concomitant]
  3. SYNTHROID [Concomitant]

REACTIONS (2)
  - PARADOXICAL DRUG REACTION [None]
  - RESTLESS LEGS SYNDROME [None]
